FAERS Safety Report 6881756-5 (Version None)
Quarter: 2010Q3

REPORT INFORMATION
  Report Type: 
  Country: None (occurrence: None)
  Receive Date: 20100729
  Receipt Date: 20100721
  Transmission Date: 20110219
  Serious: Yes (Other)
  Sender: FDA-Public Use
  Company Number: US-ASTRAZENECA-2007UW12246

PATIENT
  Age: 10413 Day
  Sex: Female
  Weight: 95.3 kg

DRUGS (18)
  1. SEROQUEL [Suspect]
     Indication: BIPOLAR DISORDER
     Dosage: 25 MG TO 100 MG
     Route: 048
     Dates: start: 20010903, end: 20060426
  2. SEROQUEL [Suspect]
     Dosage: 25 - 75 MG
     Route: 048
     Dates: start: 20040212
  3. SEROQUEL [Suspect]
     Route: 048
     Dates: end: 20060502
  4. ABILIFY [Concomitant]
     Dates: start: 20040101, end: 20060101
  5. ABILIFY [Concomitant]
     Dates: start: 20070207
  6. ABILIFY [Concomitant]
     Dosage: 10-15 MG
  7. AMBIEN [Concomitant]
     Dates: start: 20080101
  8. DEPAKOTE [Concomitant]
     Dates: start: 20080101
  9. LEXAPRO [Concomitant]
     Dates: start: 20020701
  10. LEXAPRO [Concomitant]
     Dates: start: 20070207
  11. ATIVAN [Concomitant]
     Route: 048
     Dates: start: 20031218, end: 20040212
  12. PROZAC [Concomitant]
     Route: 048
     Dates: start: 20031030
  13. RISPERDAL [Concomitant]
     Indication: BIPOLAR DISORDER
     Dosage: 1 AT NIGHT
     Dates: start: 20031001, end: 20031101
  14. MOTRIN [Concomitant]
     Indication: PAIN
     Dates: start: 20061101
  15. METFORMIN HCL [Concomitant]
     Dates: start: 20070207
  16. LISINOPRIL [Concomitant]
     Dates: start: 20070207
  17. ANAPROX [Concomitant]
     Route: 048
     Dates: start: 20041123
  18. DESYREL [Concomitant]
     Route: 048
     Dates: start: 20021120

REACTIONS (14)
  - ANXIETY [None]
  - BLOOD TRIGLYCERIDES INCREASED [None]
  - DIABETES MELLITUS [None]
  - DIABETIC KETOACIDOSIS [None]
  - DYSMENORRHOEA [None]
  - EMOTIONAL DISTRESS [None]
  - GLYCOSURIA [None]
  - HYPERCOAGULATION [None]
  - HYPERHOMOCYSTEINAEMIA [None]
  - HYPERTENSION [None]
  - METHYLENETETRAHYDROFOLATE REDUCTASE DEFICIENCY [None]
  - NEUROPATHY PERIPHERAL [None]
  - TYPE 2 DIABETES MELLITUS [None]
  - UTERINE DISORDER [None]
